FAERS Safety Report 24082303 (Version 5)
Quarter: 2024Q3

REPORT INFORMATION
  Report Type: Spontaneous
  Country: FR (occurrence: FR)
  Receive Date: 20240712
  Receipt Date: 20240812
  Transmission Date: 20241016
  Serious: Yes (Death, Life-Threatening, Hospitalization, Other)
  Sender: ABBVIE
  Company Number: FR-ABBVIE-5835624

PATIENT
  Age: 61 Year
  Sex: Male
  Weight: 74 kg

DRUGS (5)
  1. DEPAKOTE [Suspect]
     Active Substance: DIVALPROEX SODIUM
     Indication: Depression
     Dosage: STRENGTH: 250MG (250 MG X 3/D)
     Route: 048
     Dates: start: 20240513, end: 20240520
  2. VALPROMIDE [Suspect]
     Active Substance: VALPROMIDE
     Indication: Depression
     Dosage: STRENGTH: 300 MG?300 MG X 3/D
     Route: 048
     Dates: start: 20240530, end: 20240531
  3. LAMOTRIGINE [Suspect]
     Active Substance: LAMOTRIGINE
     Indication: Depression
     Dosage: TIME INTERVAL: 0.33333333 DAYS: IN THE MORNING, AT MIDDAY AND BEDTIME
     Route: 048
     Dates: start: 20240523, end: 20240528
  4. LAMOTRIGINE [Suspect]
     Active Substance: LAMOTRIGINE
     Indication: Depression
     Dosage: AT BEDTIME
     Route: 048
     Dates: start: 20240529, end: 20240530
  5. TRIMEPRAZINE [Suspect]
     Active Substance: TRIMEPRAZINE
     Indication: Depression
     Dosage: STRENGTH: 4 %
     Route: 048
     Dates: start: 20240513, end: 20240529

REACTIONS (2)
  - Hepatic cytolysis [Fatal]
  - Toxic epidermal necrolysis [Fatal]

NARRATIVE: CASE EVENT DATE: 20240531
